FAERS Safety Report 5605380-7 (Version None)
Quarter: 2008Q1

REPORT INFORMATION
  Report Type: 
  Country: None (occurrence: None)
  Receive Date: 20080123
  Receipt Date: 20080116
  Transmission Date: 20080703
  Serious: Yes (Hospitalization)
  Sender: FDA-Public Use
  Company Number: 2007BI025712

PATIENT
  Age: 47 Year
  Sex: Female

DRUGS (1)
  1. NATALIZUMAB [Suspect]
     Indication: MULTIPLE SCLEROSIS
     Dosage: 300 MG; QM; IV
     Route: 042
     Dates: start: 20070816

REACTIONS (4)
  - ENDOMETRIAL CANCER [None]
  - MENSTRUAL DISORDER [None]
  - OVARIAN CANCER [None]
  - VAGINAL HAEMORRHAGE [None]
